FAERS Safety Report 21983108 (Version 2)
Quarter: 2023Q1

REPORT INFORMATION
  Report Type: Spontaneous
  Country: US (occurrence: US)
  Receive Date: 20230213
  Receipt Date: 20230214
  Transmission Date: 20230417
  Serious: No
  Sender: FDA-Public Use
  Company Number: US-SUNOVION-2023SUN000255AA

PATIENT
  Age: 54 Year
  Sex: Male

DRUGS (1)
  1. LATUDA [Suspect]
     Active Substance: LURASIDONE HYDROCHLORIDE
     Indication: Bipolar disorder
     Dosage: 40 MG, QD
     Route: 048

REACTIONS (5)
  - Withdrawal syndrome [Not Recovered/Not Resolved]
  - Depression [Unknown]
  - Somnolence [Unknown]
  - Therapy interrupted [Unknown]
  - Therapeutic response unexpected [Unknown]
